FAERS Safety Report 5469842-8 (Version None)
Quarter: 2007Q3

REPORT INFORMATION
  Report Type: 
  Country: None (occurrence: None)
  Receive Date: 20070927
  Receipt Date: 20070809
  Transmission Date: 20080115
  Serious: Yes (Hospitalization)
  Sender: FDA-Public Use
  Company Number: US-BRISTOL-MYERS SQUIBB COMPANY-13872742

PATIENT
  Sex: Male

DRUGS (1)
  1. SPRYCEL [Suspect]
     Dates: start: 20070201

REACTIONS (1)
  - PULMONARY OEDEMA [None]
